FAERS Safety Report 9156379 (Version 1)
Quarter: 2013Q1

REPORT INFORMATION
  Report Type: Spontaneous
  Country: GB (occurrence: None)
  Receive Date: 20130208
  Receipt Date: 20130208
  Transmission Date: 20140127
  Serious: Yes (Life-Threatening, Hospitalization)
  Sender: FDA-Public Use
  Company Number: AUR-APL-2013-01163

PATIENT
  Age: 45 Year
  Sex: Female
  Weight: 40 kg

DRUGS (10)
  1. CITALOPRAM (CITALOPRAM) [Suspect]
     Indication: DEPRESSION
     Route: 048
  2. CARBIMAZOLE [Suspect]
     Indication: HYPERTHYROIDISM
     Route: 048
  3. VENLAFAXINE (VENLAFAXINE) [Suspect]
     Indication: DEPRESSION
     Route: 048
  4. ASPIRIN (ACETAYLSLICYLIC ACID) [Concomitant]
  5. DIAZEPAM (DIAZEPAM) [Concomitant]
  6. PROPRANOLOL (PROPRANOLOL) [Concomitant]
  7. THIAMINE (THIAMINE) [Concomitant]
  8. THYROXINE SODIUM (LEVOTHYROXINE SODIUM) [Concomitant]
  9. VITAMIN B COMPLEX STRONG (B-KOMPLEX) [Concomitant]
  10. VITAMIN A AND D (VITAMIDYNE A AND D) [Concomitant]

REACTIONS (2)
  - Thyroid function test abnormal [None]
  - Neutropenic sepsis [None]
